FAERS Safety Report 13801791 (Version 3)
Quarter: 2020Q4

REPORT INFORMATION
  Report Type: Report from Study
  Country: US (occurrence: US)
  Receive Date: 20170727
  Receipt Date: 20201209
  Transmission Date: 20210113
  Serious: Yes (Hospitalization)
  Sender: FDA-Public Use
  Company Number: US-JNJFOC-20170720057

PATIENT
  Age: 14 Year
  Sex: Female
  Weight: 33.8 kg

DRUGS (29)
  1. DICYCLOMINE [Concomitant]
     Active Substance: DICYCLOMINE HYDROCHLORIDE
     Route: 065
  2. ENOXAPARIN [Concomitant]
     Active Substance: ENOXAPARIN
     Route: 065
  3. INFLIXIMAB, RECOMBINANT [Suspect]
     Active Substance: INFLIXIMAB
     Indication: INFLAMMATORY BOWEL DISEASE
     Route: 042
     Dates: start: 20090107
  4. ALFENTANIL. [Concomitant]
     Active Substance: ALFENTANIL
     Route: 065
  5. GABAPENTIN. [Concomitant]
     Active Substance: GABAPENTIN
     Route: 065
  6. AMITRIPTYLINE [Concomitant]
     Active Substance: AMITRIPTYLINE
     Route: 065
  7. INFLIXIMAB, RECOMBINANT [Suspect]
     Active Substance: INFLIXIMAB
     Route: 042
     Dates: start: 20090331, end: 20090331
  8. HYOSCYAMINE. [Concomitant]
     Active Substance: HYOSCYAMINE
     Route: 065
  9. ONDANSETRON [Concomitant]
     Active Substance: ONDANSETRON
     Route: 065
  10. 5-ASA [Concomitant]
     Active Substance: MESALAMINE
     Route: 048
  11. MIDAZOLAM. [Concomitant]
     Active Substance: MIDAZOLAM
     Route: 065
  12. POLYETHYLENE GLYCOL [Concomitant]
     Active Substance: POLYETHYLENE GLYCOLS
     Route: 065
  13. SORBITOL. [Concomitant]
     Active Substance: SORBITOL
     Route: 065
  14. ACETAMINOPHEN. [Concomitant]
     Active Substance: ACETAMINOPHEN
     Route: 065
  15. MELATONIN [Concomitant]
     Active Substance: MELATONIN
     Route: 065
  16. ENTYVIO [Concomitant]
     Active Substance: VEDOLIZUMAB
     Route: 065
  17. BUFFERED LIDOCAINE [Concomitant]
     Route: 065
  18. LACTATED RINGERS SOLUTION [Concomitant]
     Active Substance: CALCIUM CHLORIDE\POTASSIUM CHLORIDE\SODIUM CHLORIDE\SODIUM LACTATE
     Route: 065
  19. NALOXONE [Concomitant]
     Active Substance: NALOXONE
     Route: 065
  20. CHOLECALCIFEROL [Concomitant]
     Active Substance: CHOLECALCIFEROL
     Route: 065
  21. OXYCODONE [Concomitant]
     Active Substance: OXYCODONE
     Route: 065
  22. SOMATROPIN. [Concomitant]
     Active Substance: SOMATROPIN
     Route: 065
  23. BUPIVACAINE. [Concomitant]
     Active Substance: BUPIVACAINE
     Route: 065
  24. PIPERACILLIN AND TAZOBACTAM [Concomitant]
     Active Substance: PIPERACILLIN SODIUM\TAZOBACTAM SODIUM
     Route: 065
  25. LIDOCAINE. [Concomitant]
     Active Substance: LIDOCAINE
     Route: 065
  26. BENZOCAINE-MENTHOL [Concomitant]
     Route: 065
  27. GLUCAGON. [Concomitant]
     Active Substance: GLUCAGON
     Route: 065
  28. MEGLUMINE GADOTERATE [Concomitant]
     Active Substance: GADOTERATE MEGLUMINE
     Route: 065
  29. HYDROMORPHONE [Concomitant]
     Active Substance: HYDROMORPHONE
     Route: 065

REACTIONS (1)
  - Stoma complication [Recovered/Resolved]

NARRATIVE: CASE EVENT DATE: 20170621
